FAERS Safety Report 12575769 (Version 1)
Quarter: 2016Q3

REPORT INFORMATION
  Report Type: Spontaneous
  Country: JP (occurrence: JP)
  Receive Date: 20160720
  Receipt Date: 20160720
  Transmission Date: 20161109
  Serious: Yes (Other)
  Sender: FDA-Public Use
  Company Number: GXJP2016JP001150

PATIENT
  Age: 44 Year
  Sex: Male

DRUGS (2)
  1. DACARBAZINE. [Suspect]
     Active Substance: DACARBAZINE
     Indication: DESMOID TUMOUR
     Dosage: 240 MG, UNK
     Route: 065
  2. DOXORUBICIN HYDROCHLORIDE INJECTION [Suspect]
     Active Substance: DOXORUBICIN HYDROCHLORIDE
     Indication: DESMOID TUMOUR
     Dosage: 30 MG, UNK
     Route: 065

REACTIONS (2)
  - Intestinal fistula [Recovering/Resolving]
  - White blood cell count decreased [Unknown]
